FAERS Safety Report 13226854 (Version 3)
Quarter: 2017Q1

REPORT INFORMATION
  Report Type: Spontaneous
  Country: IT (occurrence: IT)
  Receive Date: 20170213
  Receipt Date: 20170306
  Transmission Date: 20170428
  Serious: Yes (Other)
  Sender: FDA-Public Use
  Company Number: IT-PFIZER INC-2017055805

PATIENT
  Age: 75 Year
  Sex: Female

DRUGS (5)
  1. DELTACORTENE [Concomitant]
     Active Substance: PREDNISONE
     Dosage: 5 MG, UNK
     Route: 048
  2. SIMVASTATIN. [Concomitant]
     Active Substance: SIMVASTATIN
     Dosage: 20 MG, UNK
     Route: 048
  3. COUMADIN [Concomitant]
     Active Substance: WARFARIN SODIUM
     Dosage: 5 MG, UNK
     Route: 048
  4. CARDICOR [Concomitant]
     Active Substance: BISOPROLOL
     Dosage: UNK
  5. ZITROMAX [Suspect]
     Active Substance: AZITHROMYCIN
     Indication: PNEUMONITIS
     Dosage: 500 MG, TOTAL
     Route: 042
     Dates: start: 20170127, end: 20170127

REACTIONS (3)
  - Vasodilatation [Recovering/Resolving]
  - Circulatory collapse [Recovering/Resolving]
  - Vomiting [Recovering/Resolving]

NARRATIVE: CASE EVENT DATE: 20170127
